FAERS Safety Report 8476637-X (Version None)
Quarter: 2012Q2

REPORT INFORMATION
  Report Type: 
  Country: None (occurrence: None)
  Receive Date: 20120628
  Receipt Date: 20120621
  Transmission Date: 20120825
  Serious: Yes (Hospitalization)
  Sender: FDA-Public Use
  Company Number: GB-PFIZER INC-2012149411

PATIENT
  Age: 60 Year
  Sex: Female
  Weight: 76.2 kg

DRUGS (7)
  1. ACETAMINOPHEN AND CODEINE PHOSPHATE [Concomitant]
     Dosage: 8/500, AS REQUIRED.
     Route: 048
  2. VALPROIC ACID [Suspect]
     Indication: EPILEPSY
     Dosage: 1 G, 2X/DAY
     Route: 048
  3. LEVETIRACETAM [Suspect]
     Dosage: 750 MG, 2X/DAY
     Route: 048
  4. LANSOPRAZOLE [Concomitant]
     Route: 048
  5. PREGABALIN [Suspect]
     Route: 048
  6. CLOBAZAM [Concomitant]
     Route: 048
  7. CLARITHROMYCIN [Concomitant]
     Route: 048
     Dates: start: 20120520, end: 20120527

REACTIONS (4)
  - ABDOMINAL PAIN [None]
  - TENDERNESS [None]
  - PANCREATITIS [None]
  - ABDOMINAL DISTENSION [None]
